FAERS Safety Report 11472427 (Version 1)
Quarter: 2015Q3

REPORT INFORMATION
  Report Type: Spontaneous
  Country: US (occurrence: US)
  Receive Date: 20150908
  Receipt Date: 20150908
  Transmission Date: 20151125
  Serious: No
  Sender: FDA-Public Use
  Company Number: US-BAYER-2015-404912

PATIENT
  Sex: Female

DRUGS (2)
  1. MIDOL PM [Suspect]
     Active Substance: ACETAMINOPHEN\DIPHENHYDRAMINE CITRATE
     Indication: MUSCLE SPASMS
  2. MIDOL EXTENDED RELIEF [Suspect]
     Active Substance: NAPROXEN SODIUM
     Indication: MUSCLE SPASMS
     Dosage: UNK

REACTIONS (2)
  - Therapeutic response unexpected [None]
  - Product use issue [Unknown]
